FAERS Safety Report 9157236 (Version 1)
Quarter: 2013Q1

REPORT INFORMATION
  Report Type: Spontaneous
  Country: BR (occurrence: BR)
  Receive Date: 20130312
  Receipt Date: 20130312
  Transmission Date: 20140127
  Serious: Yes (Hospitalization, Other)
  Sender: FDA-Public Use
  Company Number: BR-B.I. PHARMACEUTICALS,INC./RIDGEFIELD-2013-BR-00186BR

PATIENT
  Age: 49 None
  Sex: Female
  Weight: 70 kg

DRUGS (3)
  1. MICARDIS [Suspect]
     Indication: HYPERTENSION
     Route: 048
     Dates: start: 2012, end: 20130117
  2. ANCORON [Suspect]
     Indication: ARRHYTHMIA
     Route: 048
     Dates: start: 2011, end: 2012
  3. ATACAND HCT [Suspect]
     Indication: HYPERTENSION
     Route: 048
     Dates: start: 20130118

REACTIONS (6)
  - Anaemia [Recovered/Resolved]
  - Road traffic accident [Recovered/Resolved]
  - Hypertension [Recovered/Resolved]
  - Dyspnoea [Recovered/Resolved]
  - Swelling [Not Recovered/Not Resolved]
  - Blood pressure increased [Recovered/Resolved]
